FAERS Safety Report 25342524 (Version 3)
Quarter: 2025Q3

REPORT INFORMATION
  Report Type: Spontaneous
  Country: US (occurrence: US)
  Receive Date: 20250521
  Receipt Date: 20250820
  Transmission Date: 20251020
  Serious: No
  Sender: CATALYST PHARMA
  Company Number: US-CATALYST PHARMACEUTICALS-US-CATA-25-00394

PATIENT
  Age: 5 Year
  Sex: Male
  Weight: 20.862 kg

DRUGS (4)
  1. AGAMREE [Suspect]
     Active Substance: VAMOROLONE
     Indication: Duchenne muscular dystrophy
     Dosage: 2.4 ML ONCE DAILY
     Route: 048
     Dates: start: 20250102, end: 202502
  2. AGAMREE [Suspect]
     Active Substance: VAMOROLONE
     Dosage: 2.4 ML PER DAY
     Route: 048
     Dates: start: 202502
  3. D-VI-SOL [Concomitant]
     Indication: Hypovitaminosis
     Dosage: ONE A DAY
     Route: 048
  4. PREDNISONE [Concomitant]
     Active Substance: PREDNISONE
     Indication: Stress
     Route: 065

REACTIONS (4)
  - Pyrexia [Recovered/Resolved]
  - Nasal congestion [Recovered/Resolved]
  - Diarrhoea [Recovered/Resolved]
  - Product dose omission issue [Unknown]

NARRATIVE: CASE EVENT DATE: 20250201
